FAERS Safety Report 5413049-7 (Version None)
Quarter: 2007Q3

REPORT INFORMATION
  Report Type: 
  Country: None (occurrence: None)
  Receive Date: 20070713
  Receipt Date: 20070510
  Transmission Date: 20080115
  Serious: No
  Sender: FDA-Public Use
  Company Number: 2007SP000434

PATIENT
  Age: 25 Year
  Sex: Female
  Weight: 52.1637 kg

DRUGS (2)
  1. LUNESTA [Suspect]
     Indication: SLEEP DISORDER
     Dosage: 3 MG; 1X; ORAL
     Route: 048
     Dates: start: 20070206, end: 20070206
  2. ORAL CONTRACEPTIVE NOS [Concomitant]

REACTIONS (1)
  - DYSGEUSIA [None]
